FAERS Safety Report 6919931-3 (Version None)
Quarter: 2010Q3

REPORT INFORMATION
  Report Type: 
  Country: None (occurrence: None)
  Receive Date: 20100811
  Receipt Date: 20100804
  Transmission Date: 20110219
  Serious: Yes (Hospitalization)
  Sender: FDA-Public Use
  Company Number: BR-SANOFI-AVENTIS-200913960GDDC

PATIENT
  Age: 59 Year
  Sex: Male
  Weight: 72.6 kg

DRUGS (6)
  1. BLINDED THERAPY [Suspect]
     Dosage: DOSE UNIT: 6 MG/KG
     Route: 042
     Dates: start: 20090408, end: 20090408
  2. DOCETAXEL [Suspect]
     Dosage: DOSE UNIT: 75 MG/M**2
     Route: 042
     Dates: start: 20090408, end: 20090408
  3. PREDNISONE TAB [Suspect]
     Dosage: DOSE AS USED: UNK DOSE UNIT: 5 MG
     Route: 048
     Dates: start: 20090114
  4. ZOLADEX [Concomitant]
     Indication: HORMONE REPLACEMENT THERAPY
     Dosage: DOSE AS USED: UNK
     Dates: start: 20080625
  5. HYDROCHLOROTHIAZIDE [Concomitant]
     Dosage: DOSE AS USED: UNK
     Dates: start: 20010101
  6. AMLODIPINE [Concomitant]
     Dosage: DOSE AS USED: UNK
     Dates: start: 20010101

REACTIONS (1)
  - REVERSIBLE POSTERIOR LEUKOENCEPHALOPATHY SYNDROME [None]
